FAERS Safety Report 10071560 (Version 1)
Quarter: 2014Q2

REPORT INFORMATION
  Report Type: Other
  Country: NO (occurrence: NO)
  Receive Date: 20140410
  Receipt Date: 20140410
  Transmission Date: 20141212
  Serious: Yes (Other)
  Sender: FDA-Public Use
  Company Number: NO-RB-065851-14

PATIENT
  Sex: Male

DRUGS (2)
  1. BUPRENORPHINE UNSPECIFIED [Suspect]
     Indication: DRUG DEPENDENCE
     Dosage: DOSING DETAILS UNKNOWN
     Route: 065
  2. HEROIN [Suspect]
     Indication: PAIN
     Dosage: DOSING DETAILS UNKNOWN
     Route: 042

REACTIONS (3)
  - Hand fracture [Unknown]
  - Pain [Recovering/Resolving]
  - Drug dependence [Recovered/Resolved]
